FAERS Safety Report 4933208-7 (Version None)
Quarter: 2006Q1

REPORT INFORMATION
  Report Type: 
  Country: None (occurrence: None)
  Receive Date: 20060306
  Receipt Date: 20050614
  Transmission Date: 20060701
  Serious: Yes (Hospitalization)
  Sender: FDA-Public Use
  Company Number: US-MERCK-0506USA02169

PATIENT
  Age: 50 Year
  Sex: Female
  Weight: 68 kg

DRUGS (5)
  1. VIOXX [Suspect]
     Indication: ARTHRALGIA
     Route: 048
     Dates: start: 20000101, end: 20021001
  2. VIOXX [Suspect]
     Route: 048
     Dates: end: 20040901
  3. VIOXX [Suspect]
     Indication: PAIN
     Route: 048
     Dates: start: 20000101, end: 20021001
  4. VIOXX [Suspect]
     Route: 048
     Dates: end: 20040901
  5. TYLENOL (CAPLET) [Concomitant]
     Route: 065

REACTIONS (10)
  - BALANCE DISORDER [None]
  - BLOOD PRESSURE INCREASED [None]
  - CEREBELLAR HAEMATOMA [None]
  - CEREBROVASCULAR ACCIDENT [None]
  - HAEMANGIOMA [None]
  - HYPERLIPIDAEMIA [None]
  - INFECTION [None]
  - MALAISE [None]
  - PRESCRIBED OVERDOSE [None]
  - VERTIGO POSITIONAL [None]
